FAERS Safety Report 9770684 (Version 1)
Quarter: 2013Q4

REPORT INFORMATION
  Report Type: Spontaneous
  Country: JP (occurrence: JP)
  Receive Date: 20131218
  Receipt Date: 20131218
  Transmission Date: 20140711
  Serious: Yes (Other)
  Sender: FDA-Public Use
  Company Number: JP-GLAXOSMITHKLINE-B0952836A

PATIENT
  Sex: Male

DRUGS (2)
  1. HEPSERA 10 [Suspect]
     Indication: CHRONIC HEPATITIS B
     Route: 048
     Dates: start: 2005
  2. ZEFIX 100 [Suspect]
     Indication: CHRONIC HEPATITIS B
     Route: 048
     Dates: start: 2004

REACTIONS (7)
  - Fanconi syndrome [Recovering/Resolving]
  - Renal impairment [Unknown]
  - Blood alkaline phosphatase increased [Unknown]
  - Back pain [Unknown]
  - Arthralgia [Unknown]
  - Tibia fracture [Unknown]
  - Drug tolerance [Unknown]
